FAERS Safety Report 7437962-4 (Version None)
Quarter: 2011Q2

REPORT INFORMATION
  Report Type: 
  Country: None (occurrence: None)
  Receive Date: 20110419
  Receipt Date: 20110404
  Transmission Date: 20111010
  Serious: Yes (Death, Other)
  Sender: FDA-Public Use
  Company Number: 2010AT000096

PATIENT
  Sex: Female

DRUGS (1)
  1. ALPROSTADIL [Suspect]
     Indication: EBSTEIN'S ANOMALY
     Dosage: 0.05 KG/MIN;

REACTIONS (3)
  - OFF LABEL USE [None]
  - EBSTEIN'S ANOMALY [None]
  - CONDITION AGGRAVATED [None]
